FAERS Safety Report 9328800 (Version 1)
Quarter: 2013Q2

REPORT INFORMATION
  Report Type: Spontaneous
  Country: US (occurrence: US)
  Receive Date: 20130604
  Receipt Date: 20130604
  Transmission Date: 20140414
  Serious: No
  Sender: FDA-Public Use
  Company Number: US-SANOFI-AVENTIS-2013SA014205

PATIENT
  Age: 56 Year
  Sex: Female
  Weight: 132.44 kg

DRUGS (6)
  1. SOLOSTAR [Suspect]
     Indication: TYPE 2 DIABETES MELLITUS
     Dates: start: 201007
  2. LANTUS SOLOSTAR [Suspect]
     Indication: TYPE 2 DIABETES MELLITUS
     Dosage: 65 UNITS IN MORNING 65 IN EVENING
     Route: 051
     Dates: start: 201007
  3. LOPRESSOR [Concomitant]
     Indication: BLOOD PRESSURE
  4. HYDROCHLOROTHIAZIDE/LISINOPRIL [Concomitant]
     Indication: BLOOD PRESSURE
  5. POTASSIUM [Concomitant]
     Indication: BLOOD PRESSURE
  6. INSULIN ASPART [Concomitant]
     Indication: DIABETES MELLITUS
     Dosage: AS PER SLIDING SCALE

REACTIONS (4)
  - Injection site haemorrhage [Recovered/Resolved]
  - Fall [Unknown]
  - Injury [Unknown]
  - Gait disturbance [Unknown]
